FAERS Safety Report 26094683 (Version 1)
Quarter: 2025Q4

REPORT INFORMATION
  Report Type: Spontaneous
  Country: US (occurrence: US)
  Receive Date: 20251126
  Receipt Date: 20251126
  Transmission Date: 20260117
  Serious: No
  Sender: BEIGENE
  Company Number: US-BEONE MEDICINES-BGN-2025-020780

PATIENT
  Sex: Female

DRUGS (5)
  1. BRUKINSA [Suspect]
     Active Substance: ZANUBRUTINIB
     Indication: Waldenstrom^s macroglobulinaemia
     Dosage: 160 MILLIGRAM, BID
     Dates: start: 2025
  2. BRUKINSA [Suspect]
     Active Substance: ZANUBRUTINIB
     Dosage: 80 MILLIGRAM, BID (1 IN THE MORNING AND 1 IN THE EVENING)
  3. BRUKINSA [Suspect]
     Active Substance: ZANUBRUTINIB
     Dosage: 80 MILLIGRAM, QD (1 IN THE MORNING)
  4. BRUKINSA [Suspect]
     Active Substance: ZANUBRUTINIB
     Dosage: 80 MILLIGRAM, BID
  5. BRUKINSA [Suspect]
     Active Substance: ZANUBRUTINIB
     Dosage: 80 MILLIGRAM, QD

REACTIONS (7)
  - Uterine disorder [Unknown]
  - Haemorrhage [Unknown]
  - Contusion [Unknown]
  - Vertigo [Unknown]
  - Headache [Unknown]
  - Muscular weakness [Unknown]
  - Renal disorder [Unknown]
